FAERS Safety Report 5813601-0 (Version None)
Quarter: 2008Q3

REPORT INFORMATION
  Report Type: 
  Country: None (occurrence: None)
  Receive Date: 20080716
  Receipt Date: 20080716
  Transmission Date: 20090109
  Serious: Yes (Hospitalization, Other)
  Sender: FDA-Public Use
  Company Number: None

PATIENT
  Age: 40 Year
  Sex: Female

DRUGS (1)
  1. DEXFERRUM [Suspect]
     Dosage: SEE ABOVE

REACTIONS (5)
  - BACK PAIN [None]
  - CHEST DISCOMFORT [None]
  - DYSPNOEA [None]
  - PRURITUS [None]
  - RASH [None]
